FAERS Safety Report 14532547 (Version 1)
Quarter: 2018Q1

REPORT INFORMATION
  Report Type: Spontaneous
  Country: US (occurrence: US)
  Receive Date: 20180214
  Receipt Date: 20180214
  Transmission Date: 20180509
  Serious: Yes (Other)
  Sender: FDA-Public Use
  Company Number: US-BAUSCH-SYM-2013-01498

PATIENT
  Sex: Female

DRUGS (1)
  1. BUPROPION HYDROCHLORIDE. [Suspect]
     Active Substance: BUPROPION HYDROCHLORIDE
     Indication: PRODUCT USED FOR UNKNOWN INDICATION
     Route: 065

REACTIONS (5)
  - Urine odour abnormal [Not Recovered/Not Resolved]
  - Salpingitis [Unknown]
  - Vaginal haemorrhage [Not Recovered/Not Resolved]
  - Discomfort [Not Recovered/Not Resolved]
  - Mood swings [Unknown]
